FAERS Safety Report 9641239 (Version 7)
Quarter: 2014Q3

REPORT INFORMATION
  Report Type: Spontaneous
  Country: US (occurrence: US)
  Receive Date: 20131023
  Receipt Date: 20140714
  Transmission Date: 20150326
  Serious: Yes (Life-Threatening, Other)
  Sender: FDA-Public Use
  Company Number: US-TEVA-438517USA

PATIENT
  Age: 50 Year
  Sex: Female

DRUGS (4)
  1. SIMVASTATIN. [Suspect]
     Active Substance: SIMVASTATIN
     Dosage: 40 MILLIGRAM DAILY;
     Dates: start: 2012
  2. SIMVASTATIN. [Suspect]
     Active Substance: SIMVASTATIN
     Indication: BLOOD CHOLESTEROL INCREASED
     Dosage: 20 MILLIGRAM DAILY;
     Dates: start: 2010
  3. SLO-NIACIN [Concomitant]
     Active Substance: DIETARY SUPPLEMENT
  4. COENZYME Q10 [Concomitant]
     Active Substance: UBIDECARENONE

REACTIONS (19)
  - Contusion [Unknown]
  - Muscle atrophy [Unknown]
  - Pain [Unknown]
  - Pruritus [Unknown]
  - Pain in extremity [Recovered/Resolved]
  - Disturbance in attention [Unknown]
  - Restless legs syndrome [Unknown]
  - Muscle fatigue [Recovering/Resolving]
  - Activities of daily living impaired [Unknown]
  - Pain in extremity [Unknown]
  - Muscle spasms [Unknown]
  - Myalgia [Recovering/Resolving]
  - Vision blurred [Recovered/Resolved]
  - Insomnia [Unknown]
  - Crying [Unknown]
  - Weight increased [Unknown]
  - Muscular weakness [Not Recovered/Not Resolved]
  - Gait disturbance [Unknown]
  - Muscle disorder [Unknown]

NARRATIVE: CASE EVENT DATE: 20120816
